FAERS Safety Report 25536935 (Version 2)
Quarter: 2025Q3

REPORT INFORMATION
  Report Type: Spontaneous
  Country: CN (occurrence: CN)
  Receive Date: 20250710
  Receipt Date: 20250810
  Transmission Date: 20251021
  Serious: Yes (Other)
  Sender: ALEXION PHARMACEUTICALS
  Company Number: CN-AstraZeneca-CH-00903430A

PATIENT
  Age: 67 Year
  Sex: Male

DRUGS (1)
  1. TAGRISSO [Suspect]
     Active Substance: OSIMERTINIB
     Indication: Lung neoplasm malignant
     Route: 065

REACTIONS (7)
  - Ulcer [Unknown]
  - Dizziness [Unknown]
  - Hepatotoxicity [Unknown]
  - Cardiac disorder [Unknown]
  - Extrasystoles [Unknown]
  - Liver function test increased [Unknown]
  - Renal function test abnormal [Unknown]
